FAERS Safety Report 15160574 (Version 1)
Quarter: 2018Q3

REPORT INFORMATION
  Report Type: Spontaneous
  Country: GB (occurrence: GB)
  Receive Date: 20180718
  Receipt Date: 20180718
  Transmission Date: 20181010
  Serious: Yes (Hospitalization, Other)
  Sender: FDA-Public Use
  Company Number: GB-TEVA-2018-GB-928131

PATIENT
  Age: 65 Year
  Sex: Male

DRUGS (6)
  1. PARACETAMOL [Concomitant]
     Active Substance: ACETAMINOPHEN
  2. PHENYTOIN. [Suspect]
     Active Substance: PHENYTOIN
     Dosage: AT NIGHT
     Route: 048
  3. SIMVASTATIN. [Concomitant]
     Active Substance: SIMVASTATIN
  4. PHENYTOIN. [Suspect]
     Active Substance: PHENYTOIN
     Dosage: AT NIGHT
     Route: 048
  5. GLYCERYL TRINITRATE [Concomitant]
     Active Substance: NITROGLYCERIN
  6. ACETYLSALICYLIC ACID [Concomitant]
     Active Substance: ASPIRIN

REACTIONS (6)
  - Confusional state [Recovering/Resolving]
  - Toxicity to various agents [Not Recovered/Not Resolved]
  - Dizziness [Recovering/Resolving]
  - Cerebellar syndrome [Recovering/Resolving]
  - Past-pointing [Recovering/Resolving]
  - Lethargy [Recovering/Resolving]
